FAERS Safety Report 7913477-1 (Version None)
Quarter: 2011Q4

REPORT INFORMATION
  Report Type: 
  Country: None (occurrence: None)
  Receive Date: 20111110
  Receipt Date: 20111025
  Transmission Date: 20120403
  Serious: Yes (Other)
  Sender: FDA-Public Use
  Company Number: 2011AP002490

PATIENT
  Age: 30 Year
  Sex: Male

DRUGS (1)
  1. TERBINAFINE HCL [Suspect]
     Dates: start: 20110927

REACTIONS (3)
  - DEPRESSED MOOD [None]
  - PANIC ATTACK [None]
  - DEPRESSION [None]
